FAERS Safety Report 14007435 (Version 1)
Quarter: 2017Q3

REPORT INFORMATION
  Report Type: Spontaneous
  Country: JP (occurrence: JP)
  Receive Date: 20170925
  Receipt Date: 20170925
  Transmission Date: 20171128
  Serious: Yes (Other)
  Sender: FDA-Public Use
  Company Number: PHHY2017JP140102

PATIENT
  Age: 51 Year
  Sex: Male

DRUGS (5)
  1. IMATINIB [Suspect]
     Active Substance: IMATINIB
     Dosage: 200 MG, QD
     Route: 065
  2. IMATINIB [Suspect]
     Active Substance: IMATINIB
     Dosage: 300 MG, QD (AT DAY 542)
     Route: 065
  3. IMATINIB [Suspect]
     Active Substance: IMATINIB
     Indication: PULMONARY CAPILLARY HAEMANGIOMATOSIS
     Dosage: 200 MG, QD
     Route: 065
  4. IMATINIB [Suspect]
     Active Substance: IMATINIB
     Indication: PULMONARY VENO-OCCLUSIVE DISEASE
     Dosage: 100 MG, QD
     Route: 065
  5. IMATINIB [Suspect]
     Active Substance: IMATINIB
     Dosage: 250 MG, QD
     Route: 065

REACTIONS (2)
  - Product use in unapproved indication [Unknown]
  - Agranulocytosis [Recovered/Resolved]
